FAERS Safety Report 5110461-0 (Version None)
Quarter: 2006Q3

REPORT INFORMATION
  Report Type: 
  Country: None (occurrence: None)
  Receive Date: 20060921
  Receipt Date: 20060919
  Transmission Date: 20061208
  Serious: Yes (Other)
  Sender: FDA-Public Use
  Company Number: US-GLAXOSMITHKLINE-A0620662A

PATIENT
  Sex: Female

DRUGS (2)
  1. TUMS REGULAR TABLETS, ASSORTED FRUIT [Suspect]
     Indication: DRUG USE FOR UNKNOWN INDICATION
     Route: 048
  2. BLOOD THINNER [Concomitant]

REACTIONS (1)
  - COAGULOPATHY [None]
